FAERS Safety Report 21356298 (Version 2)
Quarter: 2022Q4

REPORT INFORMATION
  Report Type: Spontaneous
  Country: US (occurrence: US)
  Receive Date: 20220920
  Receipt Date: 20221116
  Transmission Date: 20230113
  Serious: Yes (Other)
  Sender: FDA-Public Use
  Company Number: US-BRISTOL-MYERS SQUIBB COMPANY-2022-108846

PATIENT
  Age: 80 Year
  Sex: Female

DRUGS (2)
  1. REVLIMID [Suspect]
     Active Substance: LENALIDOMIDE
     Indication: Amyloidosis
     Dosage: DAILY
     Route: 048
     Dates: start: 20210701
  2. REVLIMID [Suspect]
     Active Substance: LENALIDOMIDE
     Dosage: NCE DAILY FOR 21DAYS ON AND 7 DAYS OFF
     Route: 048
     Dates: start: 20220919

REACTIONS (3)
  - Neuropathy peripheral [Unknown]
  - Intentional product use issue [Unknown]
  - Neck pain [Unknown]
